FAERS Safety Report 25455874 (Version 3)
Quarter: 2025Q3

REPORT INFORMATION
  Report Type: Spontaneous
  Country: US (occurrence: US)
  Receive Date: 20250619
  Receipt Date: 20250701
  Transmission Date: 20251020
  Serious: No
  Sender: ELI LILLY AND COMPANY
  Company Number: US-ELI_LILLY_AND_COMPANY-US202506008653

PATIENT
  Age: 51 Year
  Sex: Female

DRUGS (2)
  1. ZEPBOUND [Suspect]
     Active Substance: TIRZEPATIDE
     Indication: Weight control
     Route: 058
  2. ZEPBOUND [Suspect]
     Active Substance: TIRZEPATIDE
     Route: 058
     Dates: start: 20250606, end: 20250613

REACTIONS (19)
  - Feeling abnormal [Unknown]
  - Influenza [Unknown]
  - Hunger [Unknown]
  - Protein total decreased [Unknown]
  - Feeding disorder [Unknown]
  - Illness [Unknown]
  - Gastrointestinal disorder [Unknown]
  - Pain [Recovered/Resolved]
  - Renal impairment [Unknown]
  - Malnutrition [Unknown]
  - Drug ineffective [Unknown]
  - Diarrhoea [Recovering/Resolving]
  - Eructation [Unknown]
  - Dyspepsia [Unknown]
  - Asthenia [Unknown]
  - Nausea [Unknown]
  - Abdominal discomfort [Unknown]
  - Vomiting [Unknown]
  - Dehydration [Unknown]

NARRATIVE: CASE EVENT DATE: 20250606
